FAERS Safety Report 9899523 (Version 1)
Quarter: 2014Q1

REPORT INFORMATION
  Report Type: Spontaneous
  Country: JP (occurrence: JP)
  Receive Date: 20140214
  Receipt Date: 20140214
  Transmission Date: 20141002
  Serious: Yes (Other)
  Sender: FDA-Public Use
  Company Number: JP-OTSUKA-JP-2014-10677

PATIENT
  Sex: 0

DRUGS (2)
  1. SAMSCA [Suspect]
     Dosage: UNK
     Route: 048
  2. DIURETICS [Concomitant]
     Dosage: UNK UNK, DAILY DOSE
     Route: 065

REACTIONS (1)
  - Blood sodium decreased [Recovering/Resolving]
